FAERS Safety Report 21147477 (Version 3)
Quarter: 2023Q4

REPORT INFORMATION
  Report Type: Report from Study
  Country: FR (occurrence: FR)
  Receive Date: 20220729
  Receipt Date: 20231026
  Transmission Date: 20240109
  Serious: Yes (Life-Threatening, Hospitalization)
  Sender: FDA-Public Use
  Company Number: FR-SA-SAC20220726001819

PATIENT
  Age: 71 Year
  Sex: Female
  Weight: 57 kg

DRUGS (21)
  1. ISATUXIMAB [Suspect]
     Active Substance: ISATUXIMAB
     Indication: Plasma cell myeloma
     Dosage: 610 MG
     Route: 065
     Dates: start: 20211022, end: 20211022
  2. ISATUXIMAB [Suspect]
     Active Substance: ISATUXIMAB
     Dosage: 610 MG
     Route: 065
     Dates: start: 20211029, end: 20211029
  3. LENALIDOMIDE [Suspect]
     Active Substance: LENALIDOMIDE
     Indication: Plasma cell myeloma
     Dosage: 25 MG
     Dates: start: 20211022, end: 20211022
  4. LENALIDOMIDE [Suspect]
     Active Substance: LENALIDOMIDE
     Dosage: 25 MG
     Dates: start: 20211104, end: 20211104
  5. BORTEZOMIB [Suspect]
     Active Substance: BORTEZOMIB
     Indication: Plasma cell myeloma
     Dosage: 2.08 MG
     Dates: start: 20211022, end: 20211022
  6. BORTEZOMIB [Suspect]
     Active Substance: BORTEZOMIB
     Dosage: 2.08 MG
     Dates: start: 20211029, end: 20211029
  7. DALTEPARIN SODIUM [Concomitant]
     Active Substance: DALTEPARIN SODIUM
     Indication: Embolism
     Dosage: 12 500
     Route: 058
     Dates: start: 20211115
  8. VALSARTAN [Concomitant]
     Active Substance: VALSARTAN
     Indication: Hypertension
     Dosage: 80X2
     Route: 048
     Dates: start: 20211022
  9. METFORMIN PAMOATE [Concomitant]
     Active Substance: METFORMIN PAMOATE
     Indication: Diabetes mellitus
     Dosage: 700 MG, BID
     Route: 048
     Dates: start: 20211022
  10. LANSOPRAZOLE [Concomitant]
     Active Substance: LANSOPRAZOLE
     Indication: Hyperchlorhydria
     Dosage: 15 MG
     Route: 048
     Dates: start: 20211022
  11. HYDROCHLOROTHIAZIDE [Concomitant]
     Active Substance: HYDROCHLOROTHIAZIDE
     Indication: Diuretic therapy
     Dosage: 10 MG
     Route: 048
     Dates: start: 20211022
  12. NICARDIPINE HYDROCHLORIDE [Concomitant]
     Active Substance: NICARDIPINE HYDROCHLORIDE
     Indication: Hypertension
     Dosage: 50 MG, BID
     Route: 048
     Dates: start: 20211022
  13. VALACYCLOVIR HYDROCHLORIDE [Concomitant]
     Active Substance: VALACYCLOVIR HYDROCHLORIDE
     Indication: Antiviral treatment
     Dosage: 500 MG
     Route: 048
     Dates: start: 20211022
  14. BACTRIM [Concomitant]
     Active Substance: SULFAMETHOXAZOLE\TRIMETHOPRIM
     Indication: Anti-infective therapy
     Dosage: UNK
     Route: 048
     Dates: start: 20211022
  15. FOLIC ACID [Concomitant]
     Active Substance: FOLIC ACID
     Indication: Prophylaxis
     Dosage: 5 MG, TID
     Route: 048
     Dates: start: 20211022
  16. POLYETHYLENE GLYCOLS [Concomitant]
     Active Substance: POLYETHYLENE GLYCOLS
     Indication: Constipation
     Dosage: 1 G
     Route: 048
     Dates: start: 20211022
  17. DAFALGAN [Concomitant]
     Active Substance: ACETAMINOPHEN
     Indication: Pain
     Dosage: 1 G
     Route: 048
     Dates: start: 20211022
  18. MORPHINE SULFATE [Concomitant]
     Active Substance: MORPHINE SULFATE
     Indication: Pain
     Dosage: 5 MG 1 TO 4
     Route: 048
     Dates: start: 20211022
  19. RETACRIT [Concomitant]
     Active Substance: EPOETIN ALFA-EPBX
     Indication: Anaemia
     Dosage: 30000 IU
     Dates: start: 20211022
  20. DEXAMETHASONE [Concomitant]
     Active Substance: DEXAMETHASONE
     Indication: Plasma cell myeloma
     Dosage: 20 MG
     Dates: start: 20211022, end: 20211022
  21. DEXAMETHASONE [Concomitant]
     Active Substance: DEXAMETHASONE
     Dosage: 20 MG
     Dates: start: 20211109, end: 20211109

REACTIONS (2)
  - Platelet count decreased [Recovered/Resolved]
  - Bacteraemia [Recovering/Resolving]

NARRATIVE: CASE EVENT DATE: 20211105
